FAERS Safety Report 7490323-4 (Version None)
Quarter: 2011Q2

REPORT INFORMATION
  Report Type: 
  Country: None (occurrence: None)
  Receive Date: 20110519
  Receipt Date: 20110512
  Transmission Date: 20111010
  Serious: Yes (Hospitalization, Other)
  Sender: FDA-Public Use
  Company Number: US-PFIZER INC-2010063544

PATIENT
  Sex: Female
  Weight: 57 kg

DRUGS (4)
  1. DILANTIN [Suspect]
     Dosage: 100 MG, 2X/DAY
     Dates: start: 19980829
  2. DILANTIN [Suspect]
     Dosage: 100 MG, 3X/DAY
     Dates: start: 19980831
  3. PHENOBARBITAL [Concomitant]
     Indication: GRAND MAL CONVULSION
     Dosage: 30 MG, 2X/DAY
     Route: 048
     Dates: start: 19981006
  4. DILANTIN [Suspect]
     Indication: GRAND MAL CONVULSION
     Dosage: 100 MG, 3X/DAY
     Dates: start: 19980722, end: 19980101

REACTIONS (1)
  - STEVENS-JOHNSON SYNDROME [None]
